FAERS Safety Report 5301189-2 (Version None)
Quarter: 2007Q2

REPORT INFORMATION
  Report Type: 
  Country: None (occurrence: None)
  Receive Date: 20070418
  Receipt Date: 20070409
  Transmission Date: 20071010
  Serious: Yes (Hospitalization, Other)
  Sender: FDA-Public Use
  Company Number: US-PFIZER INC-2007028961

PATIENT
  Sex: Female
  Weight: 59 kg

DRUGS (4)
  1. DILANTIN [Interacting]
  2. CHANTIX [Suspect]
     Indication: SMOKING CESSATION THERAPY
  3. PREDNISONE TAB [Suspect]
  4. CHEMOTHERAPY NOS [Interacting]
     Indication: BREAST CANCER

REACTIONS (6)
  - ABDOMINAL PAIN [None]
  - BREAST CANCER [None]
  - DRUG INTERACTION [None]
  - EMPHYSEMA [None]
  - NAUSEA [None]
  - VOMITING [None]
